FAERS Safety Report 10517342 (Version 1)
Quarter: 2014Q4

REPORT INFORMATION
  Report Type: Spontaneous
  Country: US (occurrence: None)
  Receive Date: 20141003
  Receipt Date: 20141003
  Transmission Date: 20150528
  Serious: Yes (Other)
  Sender: FDA-Public Use
  Company Number: 2013-16463

PATIENT
  Age: 65 Year
  Sex: Female

DRUGS (4)
  1. ALENDRONATE SODIUM. [Suspect]
     Active Substance: ALENDRONATE SODIUM
     Indication: OSTEOPENIA
     Dosage: AS PRESCRIBED AND IN A FORESEEABLE MANNER
     Route: 048
     Dates: start: 2008, end: 2012
  2. FOSAMAX [Suspect]
     Active Substance: ALENDRONATE SODIUM
     Indication: OSTEOPOROSIS
     Dosage: AS PRESCRIBED AND IN A FORESEEABLE MANNER
     Route: 048
     Dates: start: 2001, end: 2008
  3. FOSAMAX [Suspect]
     Active Substance: ALENDRONATE SODIUM
     Indication: OSTEOPENIA
     Dosage: AS PRESCRIBED AND IN A FORESEEABLE MANNER
     Route: 048
     Dates: start: 2001, end: 2008
  4. ALENDRONATE SODIUM. [Suspect]
     Active Substance: ALENDRONATE SODIUM
     Indication: OSTEOPOROSIS
     Dosage: AS PRESCRIBED AND IN A FORESEEABLE MANNER
     Route: 048
     Dates: start: 2008, end: 2012

REACTIONS (3)
  - Incorrect drug administration duration [None]
  - Multiple fractures [None]
  - Atypical femur fracture [None]
